FAERS Safety Report 23239270 (Version 2)
Quarter: 2023Q4

REPORT INFORMATION
  Report Type: Other
  Country: US (occurrence: None)
  Receive Date: 20231129
  Receipt Date: 20231215
  Transmission Date: 20240109
  Serious: Yes (Hospitalization, Other)
  Sender: FDA-Public Use
  Company Number: US-ROCHE-3030297

PATIENT
  Age: 56 Year
  Sex: Male
  Weight: 76.272 kg

DRUGS (14)
  1. OCREVUS [Suspect]
     Active Substance: OCRELIZUMAB
     Indication: Relapsing multiple sclerosis
     Route: 042
     Dates: start: 20200528
  2. OCREVUS [Suspect]
     Active Substance: OCRELIZUMAB
     Route: 042
     Dates: start: 2019
  3. ZINC SULFATE [Concomitant]
     Active Substance: ZINC SULFATE
  4. MELOXICAM [Concomitant]
     Active Substance: MELOXICAM
  5. METOPROLOL [Concomitant]
     Active Substance: METOPROLOL
  6. MODAFINIL [Concomitant]
     Active Substance: MODAFINIL
  7. MIRABEGRON [Concomitant]
     Active Substance: MIRABEGRON
  8. BACLOFEN [Concomitant]
     Active Substance: BACLOFEN
  9. BUPROPION [Concomitant]
     Active Substance: BUPROPION
  10. DALFAMPRIDINE [Concomitant]
     Active Substance: DALFAMPRIDINE
  11. FLOMAX [Concomitant]
     Active Substance: TAMSULOSIN HYDROCHLORIDE
  12. FLUOXETINE [Concomitant]
     Active Substance: FLUOXETINE HYDROCHLORIDE
  13. GABAPENTIN [Concomitant]
     Active Substance: GABAPENTIN
  14. LINZESS [Concomitant]
     Active Substance: LINACLOTIDE

REACTIONS (8)
  - Gastrointestinal infection [Unknown]
  - Urinary tract infection [Recovered/Resolved]
  - Hypoaesthesia [Not Recovered/Not Resolved]
  - Paralysis [Not Recovered/Not Resolved]
  - Sepsis [Recovered/Resolved]
  - Blood pressure decreased [Recovered/Resolved]
  - Kidney infection [Recovered/Resolved]
  - Illness [Unknown]

NARRATIVE: CASE EVENT DATE: 20190101
